FAERS Safety Report 13600408 (Version 27)
Quarter: 2021Q4

REPORT INFORMATION
  Report Type: Spontaneous
  Country: US (occurrence: US)
  Receive Date: 20170601
  Receipt Date: 20211129
  Transmission Date: 20220303
  Serious: Yes (Life-Threatening, Hospitalization, Disabling, Other)
  Sender: FDA-Public Use
  Company Number: US-PFIZER INC-2017236083

PATIENT
  Age: 55 Year
  Sex: Male
  Weight: 122 kg

DRUGS (22)
  1. LYRICA [Suspect]
     Active Substance: PREGABALIN
     Indication: Neuralgia
     Dosage: 200 MG, 3X/DAY (EVERY 8 HOURS)
     Route: 048
     Dates: start: 2005
  2. LYRICA [Suspect]
     Active Substance: PREGABALIN
     Indication: Pain
  3. LYRICA [Suspect]
     Active Substance: PREGABALIN
     Indication: Neuropathy peripheral
  4. LYRICA [Suspect]
     Active Substance: PREGABALIN
     Indication: Neck pain
  5. LYRICA [Suspect]
     Active Substance: PREGABALIN
     Indication: Cervical radiculopathy
  6. LYRICA [Suspect]
     Active Substance: PREGABALIN
     Indication: Back pain
  7. LYRICA [Suspect]
     Active Substance: PREGABALIN
     Indication: Lumbar radiculopathy
  8. LYRICA [Suspect]
     Active Substance: PREGABALIN
     Indication: Post laminectomy syndrome
  9. LYRICA [Suspect]
     Active Substance: PREGABALIN
     Indication: Intervertebral disc displacement
  10. OXYTOCIN [Concomitant]
     Active Substance: OXYTOCIN
     Dosage: 30 MG
  11. DILAUDID [Concomitant]
     Active Substance: HYDROMORPHONE HYDROCHLORIDE
     Dosage: 4 MG
  12. BACLOFEN [Concomitant]
     Active Substance: BACLOFEN
     Dosage: 10 MG
  13. WARFARIN [Concomitant]
     Active Substance: WARFARIN
     Dosage: 4 MG
  14. CLOPIDOGREL [Concomitant]
     Active Substance: CLOPIDOGREL BISULFATE
     Dosage: 75 MG
  15. LISINOPRIL [Concomitant]
     Active Substance: LISINOPRIL
     Dosage: 5 MG
  16. LOVASTATIN [Concomitant]
     Active Substance: LOVASTATIN
     Dosage: 40 MG
  17. INDAPAMIDE [Concomitant]
     Active Substance: INDAPAMIDE
     Dosage: 2.5 MG
  18. CARVEDILOL [Concomitant]
     Active Substance: CARVEDILOL
     Dosage: 12.5 MG
  19. OMEPRAZOLE [Concomitant]
     Active Substance: OMEPRAZOLE
     Dosage: 20 MG
  20. FUROSEMIDE [Concomitant]
     Active Substance: FUROSEMIDE
     Dosage: 40 MG
  21. POTASSIUM CHLORIDE [Concomitant]
     Active Substance: POTASSIUM CHLORIDE
     Dosage: 20 MEQ
  22. OXYCONTIN [Concomitant]
     Active Substance: OXYCODONE HYDROCHLORIDE
     Indication: Pain
     Dosage: UNK

REACTIONS (25)
  - Myocardial infarction [Unknown]
  - Loss of consciousness [Recovered/Resolved]
  - Localised infection [Recovered/Resolved]
  - Rhabdomyolysis [Unknown]
  - Thrombosis [Unknown]
  - Cardiac failure congestive [Unknown]
  - Full blood count abnormal [Unknown]
  - Discomfort [Unknown]
  - Joint swelling [Unknown]
  - Cold-stimulus headache [Unknown]
  - Memory impairment [Unknown]
  - Malaise [Unknown]
  - Sleep disorder [Unknown]
  - Dyspnoea [Unknown]
  - Stress [Unknown]
  - Fatigue [Unknown]
  - Oedema peripheral [Unknown]
  - Cardiac disorder [Unknown]
  - Pain [Unknown]
  - Therapeutic product effect incomplete [Unknown]
  - Lacrimation increased [Unknown]
  - Fluid retention [Unknown]
  - COVID-19 [Unknown]
  - Weight increased [Unknown]
  - Blood cholesterol increased [Unknown]

NARRATIVE: CASE EVENT DATE: 20170401
